FAERS Safety Report 7347716-5 (Version None)
Quarter: 2011Q1

REPORT INFORMATION
  Report Type: 
  Country: None (occurrence: None)
  Receive Date: 20110311
  Receipt Date: 20110307
  Transmission Date: 20110831
  Serious: Yes (Other)
  Sender: FDA-Public Use
  Company Number: B0704573A

PATIENT
  Age: 62 Year
  Sex: Female

DRUGS (1)
  1. TYVERB [Suspect]
     Dosage: 1250MG PER DAY
     Route: 048

REACTIONS (1)
  - GASTROINTESTINAL TOXICITY [None]
